FAERS Safety Report 23448526 (Version 3)
Quarter: 2024Q2

REPORT INFORMATION
  Report Type: Spontaneous
  Country: US (occurrence: US)
  Receive Date: 20240127
  Receipt Date: 20240419
  Transmission Date: 20240715
  Serious: Yes (Other)
  Sender: FDA-Public Use
  Company Number: US-ABBVIE-5598013

PATIENT
  Age: 35 Year
  Sex: Female

DRUGS (2)
  1. LILETTA [Suspect]
     Active Substance: LEVONORGESTREL
     Indication: Product used for unknown indication
     Dosage: TIME INTERVAL: AS NECESSARY: FORM STRENGTH: 52 MILLIGRAM, LEVONORGESTREL 52MG IUD
     Route: 015
     Dates: start: 20231222
  2. LILETTA [Suspect]
     Active Substance: LEVONORGESTREL
     Dosage: TIME INTERVAL: AS NECESSARY: FORM STRENGTH: 20.4 MCG/24 HRS; 52 MILLIGRAM, LEVONORGESTREL 52MG IUD
     Route: 015

REACTIONS (4)
  - Haemorrhage [Unknown]
  - Device dislocation [Unknown]
  - Device expulsion [Unknown]
  - Medical device discomfort [Unknown]

NARRATIVE: CASE EVENT DATE: 20240101
